FAERS Safety Report 9156956 (Version 1)
Quarter: 2013Q1

REPORT INFORMATION
  Report Type: Spontaneous
  Country: US (occurrence: None)
  Receive Date: 20130308
  Receipt Date: 20130308
  Transmission Date: 20140127
  Serious: Yes (Other)
  Sender: FDA-Public Use
  Company Number: None

PATIENT
  Age: 60 Year
  Sex: Male
  Weight: 113.4 kg

DRUGS (2)
  1. OLANZAPINE 10MG [Suspect]
     Indication: HALLUCINATION, AUDITORY
     Route: 048
     Dates: start: 20130202, end: 20130305
  2. OLANZAPINE 10MG [Suspect]
     Indication: HALLUCINATION, VISUAL
     Route: 048
     Dates: start: 20130202, end: 20130305

REACTIONS (1)
  - Weight increased [None]
